FAERS Safety Report 20932437 (Version 1)
Quarter: 2022Q2

REPORT INFORMATION
  Report Type: Other
  Country: US (occurrence: None)
  Receive Date: 20220608
  Receipt Date: 20220608
  Transmission Date: 20220720
  Serious: No
  Sender: FDA-Public Use
  Company Number: US-ROCHE-2884079

PATIENT
  Age: 63 Year
  Sex: Female

DRUGS (13)
  1. TOCILIZUMAB [Suspect]
     Active Substance: TOCILIZUMAB
     Indication: COVID-19
     Route: 042
  2. GILTERITINIB [Concomitant]
     Active Substance: GILTERITINIB
  3. LEVOFLOXACIN [Concomitant]
     Active Substance: LEVOFLOXACIN
  4. FLUCONAZOLE [Concomitant]
     Active Substance: FLUCONAZOLE
  5. CEFEPIME [Concomitant]
     Active Substance: CEFEPIME HYDROCHLORIDE
  6. VANCOMYCIN [Concomitant]
     Active Substance: VANCOMYCIN
  7. ANIDULAFUNGIN [Concomitant]
     Active Substance: ANIDULAFUNGIN
  8. ACYCLOVIR [Concomitant]
     Active Substance: ACYCLOVIR
  9. AZITHROMYCIN [Concomitant]
     Active Substance: AZITHROMYCIN
  10. HYDROXYCHLOROQUINE [Concomitant]
     Active Substance: HYDROXYCHLOROQUINE
  11. OXYGEN [Concomitant]
     Active Substance: OXYGEN
  12. EPOPROSTENOL [Concomitant]
     Active Substance: EPOPROSTENOL
  13. DEXAMETHASONE [Concomitant]
     Active Substance: DEXAMETHASONE

REACTIONS (2)
  - Off label use [Unknown]
  - No adverse event [Unknown]
